FAERS Safety Report 8289958-0 (Version None)
Quarter: 2012Q2

REPORT INFORMATION
  Report Type: 
  Country: None (occurrence: None)
  Receive Date: 20120417
  Receipt Date: 20120403
  Transmission Date: 20120825
  Serious: Yes (Other)
  Sender: FDA-Public Use
  Company Number: JP-ROCHE-1048160

PATIENT
  Sex: Female
  Weight: 49 kg

DRUGS (6)
  1. GRANISETRON [Concomitant]
     Indication: PROPHYLAXIS
     Route: 041
     Dates: start: 20120302, end: 20120302
  2. EMEND [Concomitant]
     Route: 048
     Dates: start: 20120303, end: 20120304
  3. XELODA [Suspect]
     Indication: METASTATIC GASTRIC CANCER
     Route: 048
     Dates: start: 20120302, end: 20120306
  4. DEXAMETHASONE SODIUM PHOSPHATE [Concomitant]
     Indication: PROPHYLAXIS
     Route: 041
     Dates: start: 20120302, end: 20120302
  5. CISPLATIN [Suspect]
     Indication: METASTATIC GASTRIC CANCER
     Route: 041
     Dates: start: 20120302, end: 20120302
  6. EMEND [Concomitant]
     Indication: PROPHYLAXIS
     Route: 048
     Dates: start: 20120302, end: 20120302

REACTIONS (1)
  - HYPONATRAEMIA [None]
